FAERS Safety Report 6376263-2 (Version None)
Quarter: 2009Q3

REPORT INFORMATION
  Report Type: 
  Country: None (occurrence: None)
  Receive Date: 20090925
  Receipt Date: 20090917
  Transmission Date: 20100115
  Serious: Yes (Hospitalization)
  Sender: FDA-Public Use
  Company Number: US-BIOGENIDEC-2007BI012528

PATIENT
  Age: 55 Year
  Sex: Female
  Weight: 48 kg

DRUGS (2)
  1. AVONEX [Suspect]
     Indication: MULTIPLE SCLEROSIS
     Route: 030
     Dates: start: 19970901, end: 19980301
  2. AVONEX [Suspect]
     Route: 030
     Dates: start: 20031103

REACTIONS (10)
  - ANAEMIA [None]
  - CATARACT OPERATION [None]
  - DECREASED APPETITE [None]
  - DIARRHOEA [None]
  - FATIGUE [None]
  - NIGHTMARE [None]
  - PLEURITIC PAIN [None]
  - SYSTEMIC LUPUS ERYTHEMATOSUS [None]
  - URINARY TRACT INFECTION [None]
  - WEIGHT INCREASED [None]
